FAERS Safety Report 6099543-7 (Version None)
Quarter: 2009Q1

REPORT INFORMATION
  Report Type: 
  Country: None (occurrence: None)
  Receive Date: 20090226
  Receipt Date: 20090211
  Transmission Date: 20090719
  Serious: Yes (Life-Threatening)
  Sender: FDA-Public Use
  Company Number: 2009S1002435

PATIENT
  Age: 31 Year
  Sex: Male
  Weight: 75 kg

DRUGS (8)
  1. CITALOPRAM HYDROBROMIDE [Suspect]
     Indication: ANXIETY
     Dosage: 20 MG;
     Dates: start: 20081101
  2. CITALOPRAM HYDROBROMIDE [Suspect]
     Indication: DEPRESSION
     Dosage: 20 MG;
     Dates: start: 20081101
  3. ATAZANAVIR (CON.) [Concomitant]
  4. EFAVIRENZ (CON.) [Concomitant]
  5. LAMIVUDINE (CON.) [Concomitant]
  6. RITONAVIR (CON.) [Concomitant]
  7. TENOFOVIR (CON.) [Concomitant]
  8. TRUVADA /01398801/ (CON.) [Concomitant]

REACTIONS (3)
  - ALCOHOL ABUSE [None]
  - ALCOHOL INTERACTION [None]
  - SOMNAMBULISM [None]
